FAERS Safety Report 4820988-4 (Version None)
Quarter: 2005Q4

REPORT INFORMATION
  Report Type: 
  Country: None (occurrence: None)
  Receive Date: 20051104
  Receipt Date: 20050816
  Transmission Date: 20060501
  Serious: Yes (Life-Threatening, Hospitalization, Disabling, Other)
  Sender: FDA-Public Use
  Company Number: 200512367JP

PATIENT
  Age: 77 Year
  Sex: Male
  Weight: 58.9 kg

DRUGS (5)
  1. TAXOTERE [Suspect]
     Indication: OESOPHAGEAL CARCINOMA
     Route: 041
     Dates: start: 20050811, end: 20050811
  2. DECADRON SRC [Concomitant]
     Indication: ANAPHYLAXIS PROPHYLAXIS
     Route: 041
     Dates: start: 20050811, end: 20050811
  3. DECADRON SRC [Concomitant]
     Route: 048
     Dates: start: 20050812, end: 20050812
  4. SEROTONE [Concomitant]
     Indication: PROPHYLAXIS OF NAUSEA AND VOMITING
     Route: 041
     Dates: start: 20050811, end: 20050811
  5. LOXONIN [Concomitant]
     Indication: SHOULDER PAIN
     Route: 048
     Dates: start: 20050812

REACTIONS (12)
  - ANURIA [None]
  - BLOOD PRESSURE DECREASED [None]
  - BONE MARROW FAILURE [None]
  - CARDIAC FAILURE [None]
  - DEPRESSED LEVEL OF CONSCIOUSNESS [None]
  - HAEMODIALYSIS [None]
  - PYREXIA [None]
  - RHABDOMYOLYSIS [None]
  - SEPTIC SHOCK [None]
  - SPUTUM CULTURE POSITIVE [None]
  - STAPHYLOCOCCAL INFECTION [None]
  - WHITE BLOOD CELL COUNT DECREASED [None]
